FAERS Safety Report 9672448 (Version 1)
Quarter: 2013Q4

REPORT INFORMATION
  Report Type: Spontaneous
  Country: US (occurrence: US)
  Receive Date: 20131106
  Receipt Date: 20131106
  Transmission Date: 20140711
  Serious: Yes (Other)
  Sender: FDA-Public Use
  Company Number: PHHY2013US124497

PATIENT
  Age: 35 Month
  Sex: Female

DRUGS (1)
  1. FLECAINIDE [Suspect]

REACTIONS (3)
  - Electrocardiogram QRS complex prolonged [Recovered/Resolved]
  - Hypoperfusion [Recovered/Resolved]
  - Overdose [Unknown]
